FAERS Safety Report 23797364 (Version 2)
Quarter: 2024Q2

REPORT INFORMATION
  Report Type: Spontaneous
  Country: JP (occurrence: JP)
  Receive Date: 20240430
  Receipt Date: 20240517
  Transmission Date: 20240716
  Serious: Yes (Hospitalization, Other)
  Sender: FDA-Public Use
  Company Number: JP-TEVA-VS-3189984

PATIENT
  Age: 56 Year
  Sex: Female

DRUGS (6)
  1. CARBOPLATIN [Suspect]
     Active Substance: CARBOPLATIN
     Indication: Lung adenocarcinoma
     Route: 065
  2. PACLITAXEL [Concomitant]
     Active Substance: PACLITAXEL
     Indication: Lung adenocarcinoma
     Route: 065
  3. CAPECITABINE [Suspect]
     Active Substance: CAPECITABINE
     Indication: Breast cancer
     Route: 048
  4. GEMCITABINE [Suspect]
     Active Substance: GEMCITABINE
     Indication: Lung adenocarcinoma
     Route: 065
  5. BEVACIZUMAB [Suspect]
     Active Substance: BEVACIZUMAB
     Indication: Lung adenocarcinoma
     Route: 065
  6. PEMBROLIZUMAB [Suspect]
     Active Substance: PEMBROLIZUMAB
     Indication: Lung adenocarcinoma
     Route: 065

REACTIONS (2)
  - Drug ineffective [Unknown]
  - Pneumothorax [Recovered/Resolved]
